FAERS Safety Report 7836693-6 (Version None)
Quarter: 2011Q4

REPORT INFORMATION
  Report Type: 
  Country: None (occurrence: None)
  Receive Date: 20111024
  Receipt Date: 20110802
  Transmission Date: 20120403
  Serious: No
  Sender: FDA-Public Use
  Company Number: US-ABBOTT-11P-163-0839484-00

PATIENT
  Sex: Female

DRUGS (2)
  1. IRON [Concomitant]
     Indication: MINERAL SUPPLEMENTATION
  2. LUPRON DEPOT [Suspect]
     Indication: ENDOMETRIOSIS
     Dates: start: 20110401

REACTIONS (3)
  - HOT FLUSH [None]
  - ANXIETY [None]
  - DEPRESSED MOOD [None]
